FAERS Safety Report 10081205 (Version 2)
Quarter: 2014Q2

REPORT INFORMATION
  Report Type: Spontaneous
  Country: US (occurrence: US)
  Receive Date: 20140416
  Receipt Date: 20140425
  Transmission Date: 20141212
  Serious: No
  Sender: FDA-Public Use
  Company Number: US-PFIZER INC-2014103954

PATIENT
  Age: 63 Year
  Sex: Male
  Weight: 86.17 kg

DRUGS (2)
  1. VIAGRA [Suspect]
     Indication: ERECTILE DYSFUNCTION
     Dosage: 100 MG, AS NEEDED
     Dates: start: 201403, end: 201404
  2. VIAGRA [Suspect]
     Dosage: 100 MG, SINGLE
     Route: 048
     Dates: start: 201404, end: 201404

REACTIONS (2)
  - Drug ineffective [Unknown]
  - Suspected counterfeit product [Unknown]
